FAERS Safety Report 8071031-8 (Version None)
Quarter: 2012Q1

REPORT INFORMATION
  Report Type: 
  Country: None (occurrence: None)
  Receive Date: 20120125
  Receipt Date: 20120116
  Transmission Date: 20120608
  Serious: Yes (Death, Other)
  Sender: FDA-Public Use
  Company Number: FR-ROCHE-1031239

PATIENT

DRUGS (3)
  1. TACROLIMUS [Suspect]
     Indication: RENAL TRANSPLANT
  2. MYCOPHENOLATE MOFETIL (CELLCEPT) [Suspect]
     Indication: RENAL TRANSPLANT
  3. BLINDED ALEFACEPT [Suspect]
     Indication: RENAL TRANSPLANT

REACTIONS (6)
  - LUNG NEOPLASM MALIGNANT [None]
  - CYTOMEGALOVIRUS INFECTION [None]
  - SEPTIC SHOCK [None]
  - BK VIRUS INFECTION [None]
  - NEOPLASM MALIGNANT [None]
  - INFECTION [None]
